FAERS Safety Report 5689587-9 (Version None)
Quarter: 2008Q1

REPORT INFORMATION
  Report Type: 
  Country: None (occurrence: None)
  Receive Date: 20080331
  Receipt Date: 20080305
  Transmission Date: 20080703
  Serious: No
  Sender: FDA-Public Use
  Company Number: US-BOEHRINGER INGELHEIM GMBH, GERMANY-2008-BP-02168BP

PATIENT
  Sex: Female

DRUGS (6)
  1. MIRAPEX [Suspect]
     Indication: RESTLESS LEGS SYNDROME
     Dates: start: 20020208
  2. ALPRAZOLAM [Concomitant]
  3. WELLBUTRIN [Concomitant]
  4. REMERON [Concomitant]
  5. TOPAMAX [Concomitant]
  6. EFFEXOR [Concomitant]

REACTIONS (6)
  - FLIGHT OF IDEAS [None]
  - INSOMNIA [None]
  - LIBIDO INCREASED [None]
  - LOGORRHOEA [None]
  - PATHOLOGICAL GAMBLING [None]
  - SOMNAMBULISM [None]
